FAERS Safety Report 9856979 (Version 1)
Quarter: 2014Q1

REPORT INFORMATION
  Report Type: Spontaneous
  Country: ES (occurrence: ES)
  Receive Date: 20140130
  Receipt Date: 20140130
  Transmission Date: 20141002
  Serious: Yes (Other)
  Sender: FDA-Public Use
  Company Number: ES-ASTELLAS-2014EU000729

PATIENT
  Age: 38 Year
  Sex: Male

DRUGS (11)
  1. TACROLIMUS SYSTEMIC [Suspect]
     Indication: RENAL TRANSPLANT
     Dosage: UNK
     Route: 065
  2. TACROLIMUS SYSTEMIC [Suspect]
     Indication: LUNG TRANSPLANT
  3. MYCOPHENOLATE MOFETIL [Suspect]
     Indication: RENAL TRANSPLANT
     Dosage: 1500 MG PER 12 HOUR
     Route: 065
  4. MYCOPHENOLATE MOFETIL [Suspect]
     Indication: LUNG TRANSPLANT
  5. BASILIXIMAB [Suspect]
     Indication: RENAL TRANSPLANT
     Dosage: UNK
     Route: 065
  6. BASILIXIMAB [Suspect]
     Indication: LUNG TRANSPLANT
  7. CORTICOSTEROID NOS [Suspect]
     Indication: LUNG TRANSPLANT
     Dosage: 30 MG, UNKNOWN/D
     Route: 065
  8. CORTICOSTEROID NOS [Suspect]
     Indication: RENAL TRANSPLANT
     Dosage: 15 MG, UNKNOWN/D
     Route: 065
  9. CORTICOSTEROID NOS [Suspect]
     Dosage: 10 MG, UNKNOWN/D
     Route: 065
  10. PREDNISONE [Suspect]
     Indication: LUNG TRANSPLANT
     Dosage: UNK
     Route: 065
  11. PREDNISONE [Suspect]
     Indication: RENAL TRANSPLANT

REACTIONS (15)
  - Off label use [Unknown]
  - Staphylococcal infection [Unknown]
  - Pseudomonas infection [Unknown]
  - Pseudomonas infection [Unknown]
  - Candida infection [Unknown]
  - Candida infection [Unknown]
  - Transplant rejection [Unknown]
  - Anuria [Unknown]
  - Kidney fibrosis [Unknown]
  - Renal arteriosclerosis [Unknown]
  - Renal tubular necrosis [Unknown]
  - Cholecystitis acute [Unknown]
  - Gallbladder perforation [Unknown]
  - Cholecystitis infective [Unknown]
  - Chemical peritonitis [Unknown]
